FAERS Safety Report 11390791 (Version 1)
Quarter: 2015Q3

REPORT INFORMATION
  Report Type: Spontaneous
  Country: US (occurrence: US)
  Receive Date: 20150818
  Receipt Date: 20150818
  Transmission Date: 20151125
  Serious: No
  Sender: FDA-Public Use
  Company Number: US-ROCHE-1399089

PATIENT
  Age: 63 Year
  Sex: Male

DRUGS (13)
  1. VICTOZA [Concomitant]
     Active Substance: LIRAGLUTIDE
  2. ASPIRIN. [Concomitant]
     Active Substance: ASPIRIN
  3. OMEGA 3 [Concomitant]
     Active Substance: OMEGA-3 FATTY ACIDS
  4. CLOBETASOL [Concomitant]
     Active Substance: CLOBETASOL
  5. PEGASYS [Suspect]
     Active Substance: PEGINTERFERON ALFA-2A
     Indication: PRODUCT USED FOR UNKNOWN INDICATION
     Dosage: EVERY FRIDAY
     Route: 065
     Dates: start: 20140418
  6. LEVEMIR [Concomitant]
     Active Substance: INSULIN DETEMIR
  7. PIOGLITAZONE. [Concomitant]
     Active Substance: PIOGLITAZONE
  8. VITAMIN D3 [Concomitant]
     Active Substance: CHOLECALCIFEROL
  9. FENOFIBRATE. [Concomitant]
     Active Substance: FENOFIBRATE
  10. METFORMIN [Concomitant]
     Active Substance: METFORMIN HYDROCHLORIDE
     Route: 065
  11. DOVONEX [Concomitant]
     Active Substance: CALCIPOTRIENE
  12. HYDROCHLOROTHIAZIDE/IRBESARTAN [Concomitant]
     Active Substance: HYDROCHLOROTHIAZIDE\IRBESARTAN
  13. MILK THISTLE [Concomitant]
     Active Substance: MILK THISTLE

REACTIONS (3)
  - Fatigue [Unknown]
  - Insomnia [Unknown]
  - Burning sensation [Unknown]
